FAERS Safety Report 15814856 (Version 2)
Quarter: 2019Q1

REPORT INFORMATION
  Report Type: Report from Study
  Country: ES (occurrence: ES)
  Receive Date: 20190111
  Receipt Date: 20190205
  Transmission Date: 20190417
  Serious: Yes (Other)
  Sender: FDA-Public Use
  Company Number: ES-ACCORD-101336

PATIENT
  Age: 70 Year
  Sex: Male
  Weight: 100 kg

DRUGS (17)
  1. LEUCOVORIN. [Suspect]
     Active Substance: LEUCOVORIN
     Indication: COLORECTAL CANCER METASTATIC
     Route: 041
     Dates: start: 20160316, end: 20160316
  2. ASPIRIN. [Concomitant]
     Active Substance: ASPIRIN
     Indication: PROPHYLAXIS
     Route: 065
  3. ATORVASTATIN [Concomitant]
     Active Substance: ATORVASTATIN
     Route: 065
  4. DEXAMETHASONE. [Concomitant]
     Active Substance: DEXAMETHASONE
     Route: 065
  5. FLUOROURACIL. [Suspect]
     Active Substance: FLUOROURACIL
     Indication: COLORECTAL CANCER METASTATIC
     Dosage: ALSO TAKEN 3600 MG BY INTRAVENOUS DRIP
     Route: 040
     Dates: start: 20160316, end: 20160316
  6. ATROPINE. [Concomitant]
     Active Substance: ATROPINE
     Route: 065
  7. ONDANSETRON [Concomitant]
     Active Substance: ONDANSETRON
     Route: 065
  8. DEXKETOPROFEN/DEXKETOPROFEN TROMETAMOL [Concomitant]
     Route: 065
  9. IRINOTECAN [Suspect]
     Active Substance: IRINOTECAN
     Indication: COLORECTAL CANCER METASTATIC
     Dosage: ALSO TAKEN 270 MG ON 16-MAR-2016 TO 16-MAR-2016
     Route: 041
     Dates: start: 20160127, end: 20160127
  10. ADIRO [Concomitant]
     Active Substance: ASPIRIN
     Route: 065
  11. ZALTRAP [Suspect]
     Active Substance: ZIV-AFLIBERCEPT
     Indication: COLORECTAL CANCER METASTATIC
     Route: 041
     Dates: start: 20160316, end: 20160316
  12. ENOXAPARIN [Concomitant]
     Active Substance: ENOXAPARIN
     Route: 065
  13. MORPHINE [Concomitant]
     Active Substance: MORPHINE
     Route: 065
  14. LEUCOVORIN. [Suspect]
     Active Substance: LEUCOVORIN
     Indication: COLORECTAL CANCER METASTATIC
     Dosage: ALSO TAKEN 600 MG FROM 16-MAR-2016 TO 16-MAR-2016
     Route: 041
     Dates: start: 20160127, end: 20160127
  15. LORMETAZEPAM [Concomitant]
     Active Substance: LORMETAZEPAM
     Route: 065
  16. ZALTRAP [Suspect]
     Active Substance: ZIV-AFLIBERCEPT
     Indication: COLORECTAL CANCER METASTATIC
     Dosage: ALSO TAKEN 345 MG FROM 16-MAR-2016 TO 16-MAR-2016
     Route: 041
     Dates: start: 20160127, end: 20160127
  17. INSULIN [Concomitant]
     Active Substance: INSULIN NOS
     Route: 065

REACTIONS (4)
  - Proctalgia [Recovered/Resolved]
  - Pelvic abscess [Recovered/Resolved]
  - Perianal erythema [Recovered/Resolved]
  - Fatigue [Recovered/Resolved]

NARRATIVE: CASE EVENT DATE: 20160330
